FAERS Safety Report 5512476-7 (Version None)
Quarter: 2007Q4

REPORT INFORMATION
  Report Type: 
  Country: None (occurrence: None)
  Receive Date: 20071112
  Receipt Date: 20070706
  Transmission Date: 20080405
  Serious: No
  Sender: FDA-Public Use
  Company Number: A0647830A

PATIENT
  Age: 55 Year
  Sex: Male

DRUGS (3)
  1. AVANDAMET [Suspect]
     Dosage: 1TAB TWICE PER DAY
     Route: 048
     Dates: start: 20060701, end: 20070601
  2. OMACOR [Concomitant]
  3. TRIACORT [Concomitant]

REACTIONS (1)
  - CONTUSION [None]
